FAERS Safety Report 5947366-9 (Version None)
Quarter: 2008Q4

REPORT INFORMATION
  Report Type: 
  Country: None (occurrence: None)
  Receive Date: 20081110
  Receipt Date: 20081031
  Transmission Date: 20090506
  Serious: Yes (Hospitalization)
  Sender: FDA-Public Use
  Company Number: BR-ABBOTT-08P-020-0485203-00

PATIENT
  Age: 32 Year
  Sex: Female

DRUGS (5)
  1. DEPAKENE [Suspect]
     Indication: PETIT MAL EPILEPSY
     Dates: start: 20080401, end: 20081028
  2. DEPAKENE [Suspect]
     Indication: EPILEPSY
     Route: 048
     Dates: start: 20081028
  3. RISPERIDONE [Suspect]
     Indication: AFFECTIVE DISORDER
     Dates: start: 20060101
  4. MENTOMICINA [Concomitant]
     Indication: DIABETES MELLITUS
     Dates: start: 20060101
  5. OMEPRAZOLE [Concomitant]
     Indication: GASTRIC DISORDER
     Dates: start: 20060101

REACTIONS (3)
  - CONVULSION [None]
  - MOBILITY DECREASED [None]
  - SENSORY LOSS [None]
